FAERS Safety Report 10247618 (Version 1)
Quarter: 2014Q2

REPORT INFORMATION
  Report Type: Spontaneous
  Country: US (occurrence: US)
  Receive Date: 20140619
  Receipt Date: 20140619
  Transmission Date: 20141212
  Serious: No
  Sender: FDA-Public Use
  Company Number: US-PFIZER INC-2014168730

PATIENT
  Sex: Female
  Weight: 85.26 kg

DRUGS (3)
  1. CHANTIX [Suspect]
     Indication: SMOKING CESSATION THERAPY
     Dosage: UNK
  2. DIOVAN [Concomitant]
     Indication: HYPERTENSION
     Dosage: 160 MG, DAILY
  3. JANUMET XR [Concomitant]
     Indication: DIABETES MELLITUS
     Dosage: 50 MG/1000 MG TWO TIMES A DAY

REACTIONS (1)
  - Abnormal dreams [Unknown]
